FAERS Safety Report 16323510 (Version 2)
Quarter: 2019Q3

REPORT INFORMATION
  Report Type: Spontaneous
  Country: US (occurrence: US)
  Receive Date: 20190517
  Receipt Date: 20190701
  Transmission Date: 20191004
  Serious: Yes (Other)
  Sender: FDA-Public Use
  Company Number: US-ASTELLAS-2019US020696

PATIENT
  Age: 80 Year
  Sex: Male

DRUGS (1)
  1. MYRBETRIQ [Suspect]
     Active Substance: MIRABEGRON
     Indication: URINARY INCONTINENCE
     Route: 048
     Dates: start: 20170614

REACTIONS (3)
  - Prostate cancer [Recovering/Resolving]
  - Pollakiuria [Not Recovered/Not Resolved]
  - Drug ineffective [Unknown]
